FAERS Safety Report 8238471-5 (Version None)
Quarter: 2012Q1

REPORT INFORMATION
  Report Type: 
  Country: None (occurrence: None)
  Receive Date: 20120327
  Receipt Date: 20120316
  Transmission Date: 20120608
  Serious: Yes (Hospitalization)
  Sender: FDA-Public Use
  Company Number: GB-MEDIMMUNE-MEDI-0015256

PATIENT

DRUGS (1)
  1. SYNAGIS [Suspect]

REACTIONS (1)
  - BRONCHIOLITIS [None]
